FAERS Safety Report 7601387-9 (Version None)
Quarter: 2011Q3

REPORT INFORMATION
  Report Type: 
  Country: None (occurrence: None)
  Receive Date: 20110711
  Receipt Date: 20110701
  Transmission Date: 20111222
  Serious: Yes (Other)
  Sender: FDA-Public Use
  Company Number: US-SANOFI-AVENTIS-2011SA042806

PATIENT
  Age: 67 Year
  Sex: Male

DRUGS (4)
  1. SOLOSTAR [Suspect]
  2. APIDRA [Suspect]
     Indication: TYPE 1 DIABETES MELLITUS
     Dosage: 2-4 UNITS 2-3 TIMES A DAY
     Route: 058
  3. SOLOSTAR [Suspect]
     Indication: TYPE 1 DIABETES MELLITUS
  4. LANTUS [Suspect]
     Indication: TYPE 1 DIABETES MELLITUS
     Route: 058

REACTIONS (4)
  - NEUROPATHY PERIPHERAL [None]
  - HYPOGLYCAEMIA [None]
  - BLOOD GLUCOSE INCREASED [None]
  - PRODUCT QUALITY ISSUE [None]
